FAERS Safety Report 10086162 (Version 1)
Quarter: 2014Q2

REPORT INFORMATION
  Report Type: Spontaneous
  Country: US (occurrence: US)
  Receive Date: 20140418
  Receipt Date: 20140418
  Transmission Date: 20141212
  Serious: Yes (Hospitalization)
  Sender: FDA-Public Use
  Company Number: US-ASTRAZENECA-2014SE25682

PATIENT
  Age: 503 Month
  Sex: Female
  Weight: 102.1 kg

DRUGS (2)
  1. SYMBICORT [Suspect]
     Indication: ASTHMA
     Dosage: 160/4.5 UG 2 PUFFS BID
     Route: 055
     Dates: start: 201210, end: 20140409
  2. THEOPHILLINE [Concomitant]
     Indication: ASTHMA
     Route: 048
     Dates: start: 20140317

REACTIONS (13)
  - Asthma [Unknown]
  - Hypoacusis [Unknown]
  - Malaise [Unknown]
  - Cough [Unknown]
  - Wheezing [Unknown]
  - Dyspnoea [Unknown]
  - Sinusitis [Unknown]
  - Candida infection [Unknown]
  - Throat irritation [Unknown]
  - Upper respiratory tract infection [Unknown]
  - Nasal congestion [Unknown]
  - Adverse event [Unknown]
  - Back pain [Unknown]
